FAERS Safety Report 19807983 (Version 1)
Quarter: 2021Q3

REPORT INFORMATION
  Report Type: Report from Study
  Country: US (occurrence: US)
  Receive Date: 20210908
  Receipt Date: 20210908
  Transmission Date: 20211014
  Serious: Yes (Hospitalization)
  Sender: FDA-Public Use
  Company Number: US-ASTRAZENECA-2018SE81230

PATIENT
  Age: 71 Year
  Sex: Male
  Weight: 104.9 kg

DRUGS (11)
  1. IMARADENANT. [Suspect]
     Active Substance: IMARADENANT
     Indication: PROSTATE CANCER
     Route: 048
     Dates: start: 20180820
  2. HISTRELIN [Concomitant]
     Active Substance: HISTRELIN
     Indication: HORMONE THERAPY
     Route: 065
     Dates: start: 201609
  3. DURVALUMAB. [Suspect]
     Active Substance: DURVALUMAB
     Indication: PROSTATE CANCER
     Dosage: 1500 MG, CYCLICAL
     Route: 042
     Dates: start: 20180509, end: 20180606
  4. BUPROPION. [Concomitant]
     Active Substance: BUPROPION
     Indication: DEPRESSION
     Route: 065
     Dates: start: 20180523
  5. LISINOPRIL. [Concomitant]
     Active Substance: LISINOPRIL
     Indication: HYPERTENSION
     Route: 065
     Dates: start: 2004
  6. MULTIVITAMIN [Concomitant]
     Active Substance: VITAMINS
     Indication: SUPPLEMENTATION THERAPY
     Dosage: 1 UNK, DAILY
     Route: 065
     Dates: start: 1998
  7. ASPIRIN. [Concomitant]
     Active Substance: ASPIRIN
     Route: 065
     Dates: start: 2008
  8. IMARADENANT. [Suspect]
     Active Substance: IMARADENANT
     Indication: PROSTATE CANCER
     Route: 048
     Dates: start: 20180425, end: 20180619
  9. METOPROLOL. [Concomitant]
     Active Substance: METOPROLOL
     Route: 065
     Dates: start: 20180606
  10. CYANOCOBALAMIN. [Concomitant]
     Active Substance: CYANOCOBALAMIN
     Indication: SUPPLEMENTATION THERAPY
     Route: 065
     Dates: start: 2012
  11. ALLOPURINOL. [Concomitant]
     Active Substance: ALLOPURINOL
     Indication: GOUT
     Route: 065
     Dates: start: 201202

REACTIONS (1)
  - Diabetes mellitus [Not Recovered/Not Resolved]

NARRATIVE: CASE EVENT DATE: 20180620
